FAERS Safety Report 11816081 (Version 1)
Quarter: 2015Q4

REPORT INFORMATION
  Report Type: Spontaneous
  Country: US (occurrence: US)
  Receive Date: 20151209
  Receipt Date: 20151209
  Transmission Date: 20160305
  Serious: Yes (Other)
  Sender: FDA-Public Use
  Company Number: US-BAYER-2015-482048

PATIENT
  Age: 62 Year
  Sex: Female
  Weight: 99.77 kg

DRUGS (1)
  1. ALKA-SELTZER HEARTBURN PLUS GAS RELIEFCHEWS TROPICAL PUNCH [Suspect]
     Active Substance: CALCIUM CARBONATE\DIMETHICONE
     Indication: DYSPEPSIA
     Dosage: 1 DF, PRN
     Route: 048
     Dates: start: 201509, end: 20151130

REACTIONS (5)
  - Faeces discoloured [Recovered/Resolved]
  - Dizziness [Recovered/Resolved]
  - Haematemesis [Recovered/Resolved]
  - Asthenia [Recovered/Resolved]
  - Drug ineffective [None]

NARRATIVE: CASE EVENT DATE: 201509
